FAERS Safety Report 8906485 (Version 1)
Quarter: 2012Q4

REPORT INFORMATION
  Report Type: 
  Country: US (occurrence: None)
  Receive Date: 20121113
  Receipt Date: 20121113
  Transmission Date: 20130627
  Serious: Yes (Hospitalization)
  Sender: FDA-Public Use
  Company Number: None

PATIENT
  Sex: Female
  Weight: 48.9 kg

DRUGS (5)
  1. PEG-L-ASPARAGINASE [Suspect]
     Dosage: 3550 unit
     Dates: end: 20121010
  2. PREDNISONE [Suspect]
     Dates: end: 20121101
  3. CYTARABINE [Suspect]
     Dates: end: 20121006
  4. DAUNORUBICIN [Suspect]
     Dates: end: 20121026
  5. METHOTREXATE [Suspect]

REACTIONS (13)
  - Hypertriglyceridaemia [None]
  - Hyperbilirubinaemia [None]
  - Dehydration [None]
  - Inappropriate antidiuretic hormone secretion [None]
  - Abdominal pain upper [None]
  - Hunger [None]
  - Constipation [None]
  - Faeces hard [None]
  - Contusion [None]
  - Paraesthesia [None]
  - Pain [None]
  - Dry skin [None]
  - Unevaluable event [None]
